FAERS Safety Report 5882556-5 (Version None)
Quarter: 2008Q3

REPORT INFORMATION
  Report Type: 
  Country: None (occurrence: None)
  Receive Date: 20080913
  Receipt Date: 20080807
  Transmission Date: 20090109
  Serious: No
  Sender: FDA-Public Use
  Company Number: US-ABBOTT-08P-163-0469526-00

PATIENT
  Sex: Female
  Weight: 67.192 kg

DRUGS (5)
  1. HUMIRA [Suspect]
     Indication: CROHN'S DISEASE
     Route: 058
     Dates: start: 20050101
  2. ALBUTEROL SPIROS [Concomitant]
     Indication: LUNG DISORDER
     Route: 055
     Dates: start: 20050101
  3. SERETIDE [Concomitant]
     Indication: LUNG DISORDER
     Route: 055
     Dates: start: 20050101
  4. FLUTICASONE PROPIONATE [Concomitant]
     Indication: HYPERSENSITIVITY
     Dosage: 2 SPRAYS EACH NOSTRIL
     Route: 045
     Dates: start: 20050101
  5. CIRRUS [Concomitant]
     Indication: HYPERSENSITIVITY
     Route: 048
     Dates: start: 20050101

REACTIONS (2)
  - RECTAL HAEMORRHAGE [None]
  - VOMITING [None]
